FAERS Safety Report 11462883 (Version 1)
Quarter: 2015Q3

REPORT INFORMATION
  Report Type: Spontaneous
  Country: US (occurrence: US)
  Receive Date: 20150831
  Receipt Date: 20150831
  Transmission Date: 20151125
  Serious: Yes (Other)
  Sender: FDA-Public Use
  Company Number: US-ELI_LILLY_AND_COMPANY-US201012001437

PATIENT
  Age: 35 Year
  Sex: Female
  Weight: 81.63 kg

DRUGS (8)
  1. IRON [Concomitant]
     Active Substance: IRON
     Dosage: 65 MG, DAILY (1/D)
  2. CYMBALTA [Suspect]
     Active Substance: DULOXETINE HYDROCHLORIDE
     Indication: FIBROMYALGIA
     Dosage: 30 MG, 2/D
     Dates: start: 201010
  3. CRANBERRY. [Concomitant]
     Active Substance: CRANBERRY
  4. CLARITIN-D 12 HOUR [Concomitant]
     Active Substance: LORATADINE\PSEUDOEPHEDRINE SULFATE
     Dosage: UNK, DAILY (1/D)
  5. VITAMIN B3 [Concomitant]
     Active Substance: NIACIN
     Dosage: 2000 IU, DAILY (1/D)
  6. VITAMIN E [Concomitant]
     Active Substance: .ALPHA.-TOCOPHEROL
     Dosage: 400 IU, DAILY (1/D)
  7. TRAMADOL. [Concomitant]
     Active Substance: TRAMADOL
     Dosage: 50 MG, EVERY 4 HRS
  8. PRILOSEC [Concomitant]
     Active Substance: OMEPRAZOLE MAGNESIUM
     Dosage: UNK, DAILY (1/D)

REACTIONS (15)
  - Laboratory test abnormal [Unknown]
  - Menstrual disorder [Unknown]
  - Drug effect incomplete [Unknown]
  - Tinnitus [Unknown]
  - Insomnia [Unknown]
  - Weight increased [Unknown]
  - Hallucination, auditory [Unknown]
  - Fibromyalgia [Unknown]
  - Irritability [Unknown]
  - Herpes zoster [Unknown]
  - Aggression [Unknown]
  - Suicidal ideation [Unknown]
  - Blood disorder [Unknown]
  - Respiration abnormal [Unknown]
  - Decreased appetite [Unknown]

NARRATIVE: CASE EVENT DATE: 20101124
